FAERS Safety Report 26112635 (Version 1)
Quarter: 2025Q4

REPORT INFORMATION
  Report Type: Spontaneous
  Country: US (occurrence: None)
  Receive Date: 20251202
  Receipt Date: 20251202
  Transmission Date: 20260117
  Serious: No
  Sender: INCYTE
  Company Number: US-INCYTE CORPORATION-2025IN013067

PATIENT
  Age: 31 Year

DRUGS (1)
  1. JAKAFI [Suspect]
     Active Substance: RUXOLITINIB
     Indication: Graft versus host disease
     Dosage: 5 MILLIGRAM (TAKE 1 TABLET BY MOUTH EVERY MORNING AND ONE-HALF TABLET EVERY EVENING)

REACTIONS (1)
  - Wrong technique in product usage process [Unknown]
